FAERS Safety Report 5908999-9 (Version None)
Quarter: 2008Q4

REPORT INFORMATION
  Report Type: 
  Country: None (occurrence: None)
  Receive Date: 20081001
  Receipt Date: 20080915
  Transmission Date: 20090506
  Serious: Yes (Hospitalization)
  Sender: FDA-Public Use
  Company Number: 8036718

PATIENT
  Age: 65 Year
  Sex: Female

DRUGS (6)
  1. KEPPRA [Suspect]
     Indication: EPILEPSY
     Dosage: 1500 MG /D PO
     Route: 048
     Dates: start: 20080729, end: 20080814
  2. SELECTIVE SEROTONIN REUPTAKE INHIBITORS [Suspect]
     Indication: DEPRESSION
     Dates: start: 20070101, end: 20080811
  3. HEPARIN [Suspect]
  4. PAROXETINA APHAR [Concomitant]
  5. CEFAZOLINA [Concomitant]
  6. CLEXANE [Concomitant]

REACTIONS (5)
  - DYSPNOEA [None]
  - EPILEPSY [None]
  - PANCYTOPENIA [None]
  - PNEUMONITIS [None]
  - PYREXIA [None]
